FAERS Safety Report 16352243 (Version 2)
Quarter: 2019Q3

REPORT INFORMATION
  Report Type: Spontaneous
  Country: CA (occurrence: CA)
  Receive Date: 20190524
  Receipt Date: 20190913
  Transmission Date: 20191004
  Serious: Yes (Disabling, Other)
  Sender: FDA-Public Use
  Company Number: CA-ORION CORPORATION ORION PHARMA-TREX2019-1554

PATIENT
  Sex: Female

DRUGS (24)
  1. ASPIRIN. [Concomitant]
     Active Substance: ASPIRIN
     Route: 065
  2. CALCIUM GLUCONATE. [Concomitant]
     Active Substance: CALCIUM GLUCONATE
     Route: 065
  3. ROSUVASTATIN CALCIUM. [Concomitant]
     Active Substance: ROSUVASTATIN CALCIUM
     Route: 065
  4. SALBUTAMOL [Concomitant]
     Active Substance: ALBUTEROL
     Route: 065
  5. ACIDOPHILUS [Concomitant]
     Active Substance: LACTOBACILLUS ACIDOPHILUS
     Route: 065
  6. DEFLAZACORT [Concomitant]
     Active Substance: DEFLAZACORT
     Dosage: STRENGTH:6.0 MG,
     Route: 065
  7. ERGOCALCIFEROL. [Concomitant]
     Active Substance: ERGOCALCIFEROL
     Route: 065
  8. HYDROMORPHONE HYDROCHLORIDE. [Concomitant]
     Active Substance: HYDROMORPHONE HYDROCHLORIDE
     Route: 065
  9. RISEDRONATE [Concomitant]
     Active Substance: RISEDRONATE SODIUM
     Route: 065
  10. METHOTREXATE (TRADE NAME UNKNOWN) [Suspect]
     Active Substance: METHOTREXATE
     Route: 065
  11. HUMIRA [Suspect]
     Active Substance: ADALIMUMAB
     Route: 058
  12. BISOPROLOL [Concomitant]
     Active Substance: BISOPROLOL
     Route: 065
  13. KENALOG [Concomitant]
     Active Substance: TRIAMCINOLONE ACETONIDE
     Route: 014
  14. LIDOCAINE. [Concomitant]
     Active Substance: LIDOCAINE
     Dosage: STRENGTH: 1MG
     Route: 061
  15. NITROGLYCERIN. [Concomitant]
     Active Substance: NITROGLYCERIN
     Route: 065
  16. TYLENOL [Concomitant]
     Active Substance: ACETAMINOPHEN
     Route: 048
  17. PRENISONE [Suspect]
     Active Substance: PREDNISONE
     Indication: PRODUCT USED FOR UNKNOWN INDICATION
     Route: 065
  18. COVERSYL [Concomitant]
     Active Substance: PERINDOPRIL
     Dosage: STRENGTH:4MG
     Route: 065
  19. METRONIDAZOLE. [Concomitant]
     Active Substance: METRONIDAZOLE
     Route: 065
  20. PANTOLOC [Concomitant]
     Active Substance: PANTOPRAZOLE SODIUM
     Dosage: STRENGTH:40 MG
     Route: 065
  21. HUMIRA [Suspect]
     Active Substance: ADALIMUMAB
     Indication: RHEUMATOID ARTHRITIS
     Route: 058
  22. METHOTREXATE (TRADE NAME UNKNOWN) [Suspect]
     Active Substance: METHOTREXATE
     Indication: RHEUMATOID ARTHRITIS
     Route: 065
  23. XELJANZ [Suspect]
     Active Substance: TOFACITINIB CITRATE
     Indication: RHEUMATOID ARTHRITIS
     Route: 048
  24. DILAUDID [Concomitant]
     Active Substance: HYDROMORPHONE HYDROCHLORIDE
     Route: 065

REACTIONS (33)
  - Heart rate increased [Recovered/Resolved]
  - Pain [Recovered/Resolved]
  - Renal failure [Recovered/Resolved]
  - Staphylococcal infection [Recovered/Resolved]
  - Synovitis [Recovered/Resolved]
  - Gastrointestinal disorder [Recovered/Resolved]
  - Bursitis infective [Recovered/Resolved]
  - Localised infection [Recovered/Resolved]
  - Skin discolouration [Recovered/Resolved]
  - Respiratory tract infection [Recovered/Resolved]
  - Septic arthritis staphylococcal [Recovered/Resolved]
  - General physical health deterioration [Recovered/Resolved]
  - Osteoporosis [Recovered/Resolved]
  - Wound complication [Recovered/Resolved]
  - Lower respiratory tract infection [Recovered/Resolved]
  - Phantom limb syndrome [Recovered/Resolved]
  - Pneumonia [Recovered/Resolved]
  - Skin infection [Recovered/Resolved]
  - Bone disorder [Recovered/Resolved]
  - Blood pressure abnormal [Recovered/Resolved]
  - Skin ulcer [Recovered/Resolved]
  - Rash [Recovered/Resolved]
  - Drug ineffective [Recovered/Resolved]
  - Tenosynovitis [Recovered/Resolved]
  - Infection [Recovered/Resolved]
  - Nasopharyngitis [Recovered/Resolved]
  - Peripheral vascular disorder [Recovered/Resolved]
  - Drug hypersensitivity [Recovered/Resolved]
  - Bronchiectasis [Recovered/Resolved]
  - Diabetes mellitus [Recovered/Resolved]
  - Nausea [Recovered/Resolved]
  - Rheumatoid arthritis [Recovered/Resolved]
  - Osteogenesis imperfecta [Recovered/Resolved]
